FAERS Safety Report 17770152 (Version 1)
Quarter: 2020Q3

REPORT INFORMATION
  Report Type: Spontaneous
  Country: ES (occurrence: ES)
  Receive Date: 20200512
  Receipt Date: 20200512
  Transmission Date: 20201105
  Serious: Yes (Hospitalization)
  Sender: FDA-Public Use
  Company Number: ES-ACCORD-181339

PATIENT
  Age: 59 Year
  Sex: Female

DRUGS (4)
  1. ENANTYUM [Interacting]
     Active Substance: DEXKETOPROFEN TROMETAMOL
     Indication: PRODUCT USED FOR UNKNOWN INDICATION
     Dosage: STRENGTH: 25 MG
     Route: 048
     Dates: start: 20120628, end: 20200408
  2. FUROSEMIDE. [Suspect]
     Active Substance: FUROSEMIDE
     Indication: PRODUCT USED FOR UNKNOWN INDICATION
     Dosage: 40 MG DAY
     Route: 048
     Dates: start: 20200319, end: 20200408
  3. ETORICOXIB. [Interacting]
     Active Substance: ETORICOXIB
     Indication: PAIN
     Dosage: 60 MG DAY
     Route: 048
     Dates: start: 20200123, end: 20200408
  4. MICARDIS PLUS [Interacting]
     Active Substance: HYDROCHLOROTHIAZIDE\TELMISARTAN
     Indication: PRODUCT USED FOR UNKNOWN INDICATION
     Dosage: STRENGTH: 80 / 12.5 MG 28 TABLETS
     Route: 048
     Dates: start: 20100924, end: 20200408

REACTIONS (3)
  - Acute kidney injury [Recovered/Resolved]
  - Hyponatraemia [Recovered/Resolved]
  - Drug interaction [Unknown]

NARRATIVE: CASE EVENT DATE: 20200408
